FAERS Safety Report 21132851 (Version 1)
Quarter: 2022Q3

REPORT INFORMATION
  Report Type: Spontaneous
  Country: US (occurrence: US)
  Receive Date: 20220726
  Receipt Date: 20220726
  Transmission Date: 20221027
  Serious: Yes (Other)
  Sender: FDA-Public Use
  Company Number: US-PFIZER INC-PV202200029280

PATIENT

DRUGS (1)
  1. LEVOFLOXACIN [Suspect]
     Active Substance: LEVOFLOXACIN
     Indication: Kidney infection
     Dosage: UNK

REACTIONS (6)
  - Suicide attempt [Unknown]
  - Off label use [Unknown]
  - Urticaria [Unknown]
  - Aggression [Unknown]
  - Insomnia [Unknown]
  - Illness [Unknown]
